FAERS Safety Report 10246775 (Version 2)
Quarter: 2014Q3

REPORT INFORMATION
  Report Type: Spontaneous
  Country: BR (occurrence: BR)
  Receive Date: 20140619
  Receipt Date: 20140823
  Transmission Date: 20150326
  Serious: Yes (Other)
  Sender: FDA-Public Use
  Company Number: PHHY2014BR074885

PATIENT
  Age: 61 Year
  Sex: Female

DRUGS (8)
  1. REMICADE [Suspect]
     Active Substance: INFLIXIMAB
     Indication: ERYTHRODERMIC PSORIASIS
     Dosage: UNK UKN, UNK
     Route: 042
     Dates: start: 201312
  2. REMICADE [Suspect]
     Active Substance: INFLIXIMAB
     Dosage: UNK UKN, UNK
     Route: 042
     Dates: start: 201312
  3. REMICADE [Suspect]
     Active Substance: INFLIXIMAB
     Dosage: UNK UKN, UNK
     Route: 042
     Dates: start: 20140529
  4. SANDIMMUN NEORAL [Suspect]
     Active Substance: CYCLOSPORINE
     Dosage: 2 DF, QW4 (DAILY 4 TIMES PER WEEK)
     Route: 048
  5. REMICADE [Suspect]
     Active Substance: INFLIXIMAB
     Dosage: UNK UKN, UNK
     Route: 042
     Dates: start: 201401
  6. REMICADE [Suspect]
     Active Substance: INFLIXIMAB
     Dosage: UNK UKN, UNK
     Route: 042
     Dates: start: 201404
  7. SANDIMMUN NEORAL [Suspect]
     Active Substance: CYCLOSPORINE
     Indication: ERYTHRODERMIC PSORIASIS
     Dosage: 3 DF, QW5 (2 DF AT MORNING AND 1 DF AT NIGHT 5 DAYS PER WEEK)
     Route: 048
     Dates: start: 201305
  8. SANDIMMUN NEORAL [Suspect]
     Active Substance: CYCLOSPORINE
     Dosage: 3 DF, DAILY FOR 15 DAYS
     Route: 048

REACTIONS (8)
  - Anaphylactic shock [Recovered/Resolved]
  - Throat tightness [Recovered/Resolved]
  - Drug ineffective [Unknown]
  - Feeling abnormal [Recovered/Resolved]
  - Laryngeal oedema [Recovered/Resolved]
  - Staphylococcal scalded skin syndrome [Not Recovered/Not Resolved]
  - Dyspnoea [Recovered/Resolved]
  - Skin exfoliation [Not Recovered/Not Resolved]

NARRATIVE: CASE EVENT DATE: 20140403
